FAERS Safety Report 4467337-1 (Version None)
Quarter: 2004Q4

REPORT INFORMATION
  Report Type: 
  Country: None (occurrence: None)
  Receive Date: 20041006
  Receipt Date: 20040826
  Transmission Date: 20050328
  Serious: Yes (Hospitalization, Other)
  Sender: FDA-Public Use
  Company Number: PHFR2004GB03289

PATIENT
  Sex: Female

DRUGS (2)
  1. ESTRADERM [Suspect]
     Indication: HORMONE REPLACEMENT THERAPY
     Dosage: UNK, UNK
     Route: 062
  2. CARBAMAZEPINE [Concomitant]
     Indication: EPILEPSY
     Dosage: 400 MG, BID
     Route: 048

REACTIONS (3)
  - MEDICATION ERROR [None]
  - PARTIAL SEIZURES [None]
  - SENSORY DISTURBANCE [None]
